FAERS Safety Report 16128353 (Version 2)
Quarter: 2019Q2

REPORT INFORMATION
  Report Type: Report from Study
  Country: CN (occurrence: CN)
  Receive Date: 20190328
  Receipt Date: 20190401
  Transmission Date: 20190711
  Serious: Yes (Hospitalization)
  Sender: FDA-Public Use
  Company Number: CN-ROCHE-2288441

PATIENT
  Age: 48 Year
  Sex: Male
  Weight: 73 kg

DRUGS (2)
  1. BEVACIZUMAB. [Suspect]
     Active Substance: BEVACIZUMAB
     Indication: HEPATOCELLULAR CARCINOMA
     Dosage: ON DAY 1 OF EACH 21 DAY CYCLE?THIS WAS ALSO THE MOST RECENT DOSE OF BEVACIZUMAB (1095 MG) PRIOR TO V
     Route: 042
     Dates: start: 20190228
  2. ATEZOLIZUMAB. [Suspect]
     Active Substance: ATEZOLIZUMAB
     Indication: HEPATOCELLULAR CARCINOMA
     Dosage: ON DAY 1 OF EACH 21 DAY CYCLE?THIS WAS ALSO THE MOST RECENT DOSE OF ATEZOLIZUMAB (1200 MG) PRIOR TO
     Route: 042
     Dates: start: 20190228

REACTIONS (1)
  - Vomiting [Recovering/Resolving]

NARRATIVE: CASE EVENT DATE: 20190314
